FAERS Safety Report 17880282 (Version 1)
Quarter: 2020Q2

REPORT INFORMATION
  Report Type: Spontaneous
  Country: US (occurrence: US)
  Receive Date: 20200610
  Receipt Date: 20200610
  Transmission Date: 20200714
  Serious: No
  Sender: FDA-Public Use
  Company Number: None

PATIENT
  Age: 93 Year
  Sex: Female
  Weight: 61.4 kg

DRUGS (2)
  1. REMDESIVIR. [Suspect]
     Active Substance: REMDESIVIR
     Indication: COVID-19
  2. ANCEF 4.5G [Concomitant]
     Dates: start: 20200607

REACTIONS (3)
  - Hypotension [None]
  - Infusion related reaction [None]
  - Hypovolaemia [None]

NARRATIVE: CASE EVENT DATE: 20200608
